FAERS Safety Report 4641334-5 (Version None)
Quarter: 2005Q2

REPORT INFORMATION
  Report Type: 
  Country: None (occurrence: None)
  Receive Date: 20050420
  Receipt Date: 20050420
  Transmission Date: 20051028
  Serious: Yes (Hospitalization)
  Sender: FDA-Public Use
  Company Number: None

PATIENT
  Sex: Male

DRUGS (4)
  1. ISOSORBIDE DINITRATE [Suspect]
     Dosage: 20 MG Q6HR EXCEPT HS
  2. ATENOLOL [Suspect]
     Dosage: 50 MG PO QD
     Route: 048
  3. LISINOPRIL [Suspect]
     Dosage: 5MG PO QD
  4. NITROGLYCERIN [Suspect]
     Dosage: SL 04 MG PRN
     Route: 060

REACTIONS (5)
  - CIRCUMSTANCE OR INFORMATION CAPABLE OF LEADING TO MEDICATION ERROR [None]
  - DIZZINESS [None]
  - INCORRECT DOSE ADMINISTERED [None]
  - LOSS OF CONSCIOUSNESS [None]
  - SYNCOPE [None]
